FAERS Safety Report 9467214 (Version 1)
Quarter: 2013Q3

REPORT INFORMATION
  Report Type: Spontaneous
  Country: US (occurrence: US)
  Receive Date: 20130821
  Receipt Date: 20130821
  Transmission Date: 20140515
  Serious: No
  Sender: FDA-Public Use
  Company Number: US-009507513-1308USA009100

PATIENT
  Sex: Female

DRUGS (2)
  1. CRIXIVAN [Suspect]
     Indication: HIV INFECTION
     Dosage: 2 DF, BID
     Route: 048
  2. EPZICOM [Concomitant]

REACTIONS (4)
  - Feeling hot [Not Recovered/Not Resolved]
  - Feeling abnormal [Not Recovered/Not Resolved]
  - Viral load increased [Not Recovered/Not Resolved]
  - CD4 lymphocytes increased [Not Recovered/Not Resolved]
